FAERS Safety Report 15699034 (Version 1)
Quarter: 2018Q4

REPORT INFORMATION
  Report Type: Spontaneous
  Country: KR (occurrence: KR)
  Receive Date: 20181207
  Receipt Date: 20181207
  Transmission Date: 20190205
  Serious: Yes (Other)
  Sender: FDA-Public Use
  Company Number: KR-BAYER-2018-221892

PATIENT
  Age: 29 Year
  Sex: Female

DRUGS (1)
  1. MIRENA [Suspect]
     Active Substance: LEVONORGESTREL
     Dosage: 20 MCG/24HR, CONT
     Route: 015
     Dates: start: 201512, end: 201701

REACTIONS (5)
  - Genital haemorrhage [None]
  - Weight decreased [None]
  - Hypomenorrhoea [None]
  - Endometrial hyperplasia [None]
  - Endometrial hyperplasia [None]

NARRATIVE: CASE EVENT DATE: 201711
